FAERS Safety Report 15089259 (Version 2)
Quarter: 2018Q3

REPORT INFORMATION
  Report Type: Spontaneous
  Country: DE (occurrence: DE)
  Receive Date: 20180629
  Receipt Date: 20180709
  Transmission Date: 20181010
  Serious: Yes (Other)
  Sender: FDA-Public Use
  Company Number: DE-ROCHE-2142138

PATIENT
  Age: 50 Year
  Sex: Male

DRUGS (18)
  1. SILYBUM MARIANUM [Interacting]
     Active Substance: DIETARY SUPPLEMENT\HERBALS\MILK THISTLE
     Indication: HIV TEST
  2. ABILIFY MAINTENA [Suspect]
     Active Substance: ARIPIPRAZOLE
     Route: 030
     Dates: start: 20150803
  3. ARIPIPRAZOLE. [Interacting]
     Active Substance: ARIPIPRAZOLE
     Indication: BIPOLAR DISORDER
     Route: 048
     Dates: start: 20150713, end: 20150802
  4. ABILIFY MAINTENA [Suspect]
     Active Substance: ARIPIPRAZOLE
     Indication: BIPOLAR DISORDER
     Route: 030
     Dates: start: 20151123
  5. ABILIFY MAINTENA [Suspect]
     Active Substance: ARIPIPRAZOLE
     Route: 030
     Dates: start: 20150831
  6. ABILIFY MAINTENA [Suspect]
     Active Substance: ARIPIPRAZOLE
     Route: 030
     Dates: start: 20151026
  7. SILYBUM MARIANUM [Interacting]
     Active Substance: DIETARY SUPPLEMENT\HERBALS\MILK THISTLE
     Indication: ANXIETY DISORDER
     Route: 030
  8. SAQUINAVIR [Suspect]
     Active Substance: SAQUINAVIR
     Indication: HIV INFECTION
     Route: 065
     Dates: start: 2005
  9. OMEPRAZOLE. [Interacting]
     Active Substance: OMEPRAZOLE
     Indication: HIV INFECTION
     Route: 048
  10. ARIPIPRAZOLE. [Interacting]
     Active Substance: ARIPIPRAZOLE
     Route: 048
     Dates: start: 20150621, end: 20150705
  11. ARIPIPRAZOLE. [Interacting]
     Active Substance: ARIPIPRAZOLE
     Route: 048
     Dates: start: 20150831, end: 20150928
  12. ARIPIPRAZOLE. [Interacting]
     Active Substance: ARIPIPRAZOLE
     Route: 048
     Dates: start: 20150606, end: 20150620
  13. RITONAVIR. [Interacting]
     Active Substance: RITONAVIR
     Indication: HIV INFECTION
     Dosage: ONCE EVERY 12 HOURS
     Route: 065
     Dates: start: 2005
  14. ABILIFY MAINTENA [Suspect]
     Active Substance: ARIPIPRAZOLE
     Route: 030
     Dates: start: 20150706
  15. LOPINAVIR [Interacting]
     Active Substance: LOPINAVIR
     Indication: HIV INFECTION
     Dosage: 1 DOSING FREQUENCY: 100/400 MG
     Route: 065
     Dates: start: 2005
  16. ABILIFY MAINTENA [Suspect]
     Active Substance: ARIPIPRAZOLE
     Route: 030
     Dates: start: 20150928
  17. ARIPIPRAZOLE. [Interacting]
     Active Substance: ARIPIPRAZOLE
     Route: 048
     Dates: start: 20150803, end: 20150831
  18. ARIPIPRAZOLE. [Interacting]
     Active Substance: ARIPIPRAZOLE
     Route: 048
     Dates: start: 20150705, end: 20150712

REACTIONS (4)
  - Prescribed underdose [Unknown]
  - Bipolar disorder [Unknown]
  - Drug interaction [Unknown]
  - Drug level below therapeutic [Unknown]
